FAERS Safety Report 9624196 (Version 1)
Quarter: 2013Q4

REPORT INFORMATION
  Report Type: Spontaneous
  Country: CA (occurrence: CA)
  Receive Date: 20131015
  Receipt Date: 20131015
  Transmission Date: 20140711
  Serious: Yes (Hospitalization)
  Sender: FDA-Public Use
  Company Number: CA-ROXANE LABORATORIES, INC.-2013-BI-30414GD

PATIENT
  Age: 72 Year
  Sex: Female

DRUGS (1)
  1. PREDNISONE [Suspect]
     Indication: CHRONIC OBSTRUCTIVE PULMONARY DISEASE
     Dosage: 30 MG DAILY WITH STANDARD TAPERING DOSES
     Route: 048

REACTIONS (6)
  - Herpes oesophagitis [Not Recovered/Not Resolved]
  - Herpes simplex [Not Recovered/Not Resolved]
  - Oesophageal stenosis [Recovered/Resolved]
  - Dysphagia [Not Recovered/Not Resolved]
  - Odynophagia [Not Recovered/Not Resolved]
  - Chest pain [Not Recovered/Not Resolved]
